FAERS Safety Report 18396935 (Version 1)
Quarter: 2020Q4

REPORT INFORMATION
  Report Type: Spontaneous
  Country: IT (occurrence: IT)
  Receive Date: 20201019
  Receipt Date: 20201019
  Transmission Date: 20210114
  Serious: Yes (Hospitalization, Other)
  Sender: FDA-Public Use
  Company Number: IT-LUPIN PHARMACEUTICALS INC.-2020-07270

PATIENT
  Age: 5 Year
  Sex: Female

DRUGS (6)
  1. METHYLPREDNISOLONE. [Suspect]
     Active Substance: METHYLPREDNISOLONE
     Indication: DERMATOMYOSITIS
     Dosage: 25 MILLIGRAM/KILOGRAM, UNK (THERAPY COMPLETED)
     Route: 065
     Dates: start: 202003, end: 202003
  2. METHOTREXATE. [Suspect]
     Active Substance: METHOTREXATE
     Dosage: 0.8 MILLIGRAM/KILOGRAM WEEKLY (RESTARTED)
     Route: 065
     Dates: start: 202005
  3. PREDNISONE. [Suspect]
     Active Substance: PREDNISONE
     Dosage: 1.5 MILLIGRAM/KILOGRAM, QD
     Route: 065
     Dates: start: 2020
  4. PREDNISONE. [Suspect]
     Active Substance: PREDNISONE
     Indication: DERMATOMYOSITIS
     Dosage: UNK (TAPERING DOSE)
     Route: 065
     Dates: start: 202003
  5. PREDNISONE. [Suspect]
     Active Substance: PREDNISONE
     Dosage: 1.2 MILLIGRAM/KILOGRAM, QD
     Route: 065
     Dates: start: 202005
  6. METHOTREXATE. [Suspect]
     Active Substance: METHOTREXATE
     Indication: DERMATOMYOSITIS
     Dosage: 0.8 MILLIGRAM/KILOGRAM WEEKLY (STOPPED)
     Route: 065
     Dates: start: 20200310

REACTIONS (1)
  - COVID-19 [Recovered/Resolved]

NARRATIVE: CASE EVENT DATE: 202003
